FAERS Safety Report 16239362 (Version 2)
Quarter: 2019Q2

REPORT INFORMATION
  Report Type: Spontaneous
  Country: JP (occurrence: JP)
  Receive Date: 20190425
  Receipt Date: 20190524
  Transmission Date: 20190711
  Serious: No
  Sender: FDA-Public Use
  Company Number: JP-PFIZER INC-2019166004

PATIENT
  Age: 65 Year
  Sex: Male
  Weight: 60 kg

DRUGS (5)
  1. LYRICA [Suspect]
     Active Substance: PREGABALIN
     Dosage: 75 MG, 1X/DAY (EVENING)
     Dates: start: 20190418
  2. LYRICA [Suspect]
     Active Substance: PREGABALIN
     Dosage: 150 MG, 2X/DAY
     Dates: start: 20190410
  3. LYRICA [Suspect]
     Active Substance: PREGABALIN
     Indication: CEREBRAL INFARCTION
     Dosage: 75 MG, 2X/DAY
     Route: 048
     Dates: start: 20190312
  4. LYRICA [Suspect]
     Active Substance: PREGABALIN
     Dosage: 225 MG, 2X/DAY (M: 75 MG A: 150MG, 2X/DAY)
     Dates: start: 20190413
  5. LYRICA [Suspect]
     Active Substance: PREGABALIN
     Dosage: 75 MG, 2X/DAY
     Dates: start: 20190416

REACTIONS (3)
  - Off label use [Unknown]
  - Product use in unapproved indication [Unknown]
  - Hallucination, auditory [Recovered/Resolved]
